FAERS Safety Report 5744511-5 (Version None)
Quarter: 2008Q2

REPORT INFORMATION
  Report Type: 
  Country: None (occurrence: None)
  Receive Date: 20080520
  Receipt Date: 20080512
  Transmission Date: 20081010
  Serious: Yes (Hospitalization)
  Sender: FDA-Public Use
  Company Number: US-PURDUE-USA_2008_0031965

PATIENT
  Age: 74 Year
  Sex: Male
  Weight: 93 kg

DRUGS (19)
  1. OXYCONTIN [Suspect]
     Indication: PAIN
     Dosage: 40 MG, UNK
     Route: 048
     Dates: start: 20050101
  2. DOXEPIN HCL [Suspect]
     Indication: DEPRESSION
     Dosage: 20 MG, SEE TEXT
     Route: 048
     Dates: start: 19970101
  3. HYDROCODONE BITARTRATE [Suspect]
     Indication: DRUG USE FOR UNKNOWN INDICATION
     Dosage: 2 TABLET, HS
     Route: 048
     Dates: start: 20000101, end: 20051221
  4. DIAZEPAM [Suspect]
     Indication: ANXIETY
     Dosage: 7.5 MG, HS
     Route: 048
     Dates: start: 19990101
  5. AMBIEN [Suspect]
     Indication: INSOMNIA
     Dosage: 10 MG, SEE TEXT
     Route: 048
     Dates: start: 19990101
  6. METFORMIN HCL [Concomitant]
     Dosage: 500 MG, DAILY
     Route: 048
     Dates: start: 20050101
  7. LANTUS [Concomitant]
     Dosage: 8 UNIT, DAILY
     Route: 058
     Dates: start: 20050101
  8. LIPITOR [Concomitant]
     Dosage: 20 MG, DAILY
     Route: 048
     Dates: start: 19940101
  9. ALTACE [Concomitant]
     Dosage: 2.5 MG, DAILY
     Route: 048
     Dates: start: 19950101
  10. ATENOLOL [Concomitant]
     Indication: HYPERTENSION
     Dosage: 25 MG, DAILY
     Route: 048
     Dates: start: 19940101
  11. TAMSULOSIN HCL [Concomitant]
     Dosage: .4 MG, BID
     Route: 048
     Dates: start: 20020101
  12. PROSCAR [Concomitant]
     Dosage: 5 MG, DAILY
     Route: 048
     Dates: start: 20020101
  13. ZANTAC [Concomitant]
     Indication: GASTROOESOPHAGEAL REFLUX DISEASE
     Dosage: 150 MG, BID
     Route: 048
     Dates: start: 19960101
  14. MONTELUKAST SODIUM [Concomitant]
     Indication: CHRONIC OBSTRUCTIVE PULMONARY DISEASE
     Dosage: 10 MG, DAILY
     Route: 048
     Dates: start: 19950101
  15. SEREVENT [Concomitant]
     Indication: CHRONIC OBSTRUCTIVE PULMONARY DISEASE
     Dosage: 50 MCG, PRN
     Route: 055
     Dates: start: 19990101
  16. FLOVENT [Concomitant]
     Dosage: 440 MCG, UNK
     Route: 055
     Dates: start: 20050101
  17. ACTIGALL [Concomitant]
     Indication: CHOLELITHIASIS
     Dosage: 300 MG, DAILY
     Dates: start: 19900101
  18. REMERON [Concomitant]
     Indication: DEPRESSION
     Dosage: 7.5 MG, HS
     Route: 048
     Dates: start: 19950101
  19. DOCUSATE SODIUM [Concomitant]
     Indication: FAECES HARD
     Dosage: UNK, PRN
     Route: 048
     Dates: start: 20010101

REACTIONS (3)
  - HYPOTENSION [None]
  - SEDATION [None]
  - TOXIC ENCEPHALOPATHY [None]
